FAERS Safety Report 5851814-2 (Version None)
Quarter: 2008Q3

REPORT INFORMATION
  Report Type: 
  Country: None (occurrence: None)
  Receive Date: 20080813
  Receipt Date: 20080227
  Transmission Date: 20090109
  Serious: Yes (Other)
  Sender: FDA-Public Use
  Company Number: US-JNJFOC-20080207219

PATIENT
  Age: 4 Year
  Sex: Female
  Weight: 18.1439 kg

DRUGS (2)
  1. MOTRIN [Suspect]
     Indication: PYREXIA
  2. TRIAMINIC (TRIOMINIC) [Suspect]
     Indication: RHINORRHOEA
     Dosage: ORAL
     Route: 048
     Dates: start: 20080120

REACTIONS (3)
  - OEDEMA PERIPHERAL [None]
  - RASH [None]
  - RENAL DISORDER [None]
